FAERS Safety Report 6228932-2 (Version None)
Quarter: 2009Q2

REPORT INFORMATION
  Report Type: 
  Country: None (occurrence: None)
  Receive Date: 20090615
  Receipt Date: 20090609
  Transmission Date: 20091009
  Serious: Yes (Other)
  Sender: FDA-Public Use
  Company Number: US-ROCHE-630950

PATIENT
  Age: 60 Year
  Sex: Male

DRUGS (5)
  1. VALIUM [Suspect]
     Indication: ANXIETY
     Route: 065
     Dates: start: 20080101
  2. TIKOSYN [Suspect]
     Indication: DRUG USE FOR UNKNOWN INDICATION
     Route: 065
  3. CARDIZEM [Suspect]
     Indication: DRUG USE FOR UNKNOWN INDICATION
     Route: 065
     Dates: start: 20090301
  4. WARFARIN SODIUM [Concomitant]
  5. DILTIAZEM [Concomitant]

REACTIONS (4)
  - ANXIETY [None]
  - ARRHYTHMIA [None]
  - CHEST PAIN [None]
  - HYPOVENTILATION [None]
